FAERS Safety Report 23988094 (Version 2)
Quarter: 2024Q3

REPORT INFORMATION
  Report Type: Spontaneous
  Country: DE (occurrence: DE)
  Receive Date: 20240619
  Receipt Date: 20240711
  Transmission Date: 20241016
  Serious: Yes (Death, Life-Threatening, Hospitalization, Other)
  Sender: BOEHRINGER INGELHEIM
  Company Number: DE-BoehringerIngelheim-2024-BI-034400

PATIENT
  Age: 72 Year
  Sex: Male
  Weight: 100 kg

DRUGS (16)
  1. JARDIANCE [Suspect]
     Active Substance: EMPAGLIFLOZIN
     Indication: Type 2 diabetes mellitus
     Dates: start: 2019
  2. JARDIANCE [Suspect]
     Active Substance: EMPAGLIFLOZIN
     Dosage: 1-0-0-0
     Route: 048
     Dates: start: 20240321, end: 202404
  3. Enalapril Tbl. 10 mg [Concomitant]
     Indication: Product used for unknown indication
     Dosage: 2-0-0-0
     Route: 048
     Dates: start: 20240216
  4. METFORMIN [Concomitant]
     Active Substance: METFORMIN HYDROCHLORIDE
     Indication: Type 2 diabetes mellitus
     Dosage: 1-0-1-0
     Route: 048
     Dates: start: 2007, end: 2024
  5. Amlodipin Tbl. 5 mg [Concomitant]
     Indication: Product used for unknown indication
     Dosage: 1-0-0-0
     Route: 048
     Dates: start: 20240212
  6. BisoHexal 5 mg Filmtbl. [Concomitant]
     Indication: Product used for unknown indication
     Dosage: 1-0-1-0
     Route: 048
     Dates: start: 20240212
  7. BisoHexal 5 mg Filmtbl. [Concomitant]
     Dosage: 1-0-0-0
     Route: 048
  8. Eliquis Tbl. 5 mg [Concomitant]
     Indication: Product used for unknown indication
     Dosage: 1-0-1-0
     Route: 048
     Dates: start: 20240322, end: 20240329
  9. Eliquis Tbl. 5 mg [Concomitant]
     Dosage: 1-0-0-0
     Route: 048
  10. Pantoprazol 40 mg magensaftres. Tbl. [Concomitant]
     Indication: Product used for unknown indication
     Dosage: 1-0-0-0
     Route: 048
     Dates: start: 20240212
  11. Siofor Filmtbl. 850 mg [Concomitant]
     Indication: Type 2 diabetes mellitus
     Dosage: 1-0-1-0
     Route: 048
     Dates: start: 20240321
  12. Spironolacton 50 mg Tbl. [Concomitant]
     Indication: Product used for unknown indication
     Dosage: 0.5-0-0-0
     Route: 048
     Dates: start: 20240216
  13. Torasemid Tbl. 10 mg [Concomitant]
     Indication: Product used for unknown indication
     Dosage: 1-0-0-0
     Route: 048
     Dates: start: 20240216
  14. Novaminsulfon Tropfen (500mg/ml) [Concomitant]
     Indication: Product used for unknown indication
     Dosage: 30-30-30-30
     Route: 048
     Dates: start: 20240212
  15. MIRTAZAPINE [Concomitant]
     Active Substance: MIRTAZAPINE
     Indication: Product used for unknown indication
     Dosage: 0-0-0-1
  16. ESCITALOPRAM [Concomitant]
     Active Substance: ESCITALOPRAM OXALATE
     Indication: Product used for unknown indication
     Dosage: 1-0-0-0

REACTIONS (51)
  - Fournier^s gangrene [Fatal]
  - Sepsis [Fatal]
  - Cardiac failure [Fatal]
  - Cardiac failure [Fatal]
  - End stage renal disease [Fatal]
  - Acute kidney injury [Unknown]
  - Necrotising fasciitis [Unknown]
  - Rhabdomyolysis [Unknown]
  - Cardiac arrest [Recovered/Resolved]
  - Pulmonary embolism [Unknown]
  - Fournier^s gangrene [Unknown]
  - Condition aggravated [Unknown]
  - Bedridden [Unknown]
  - Immobile [Unknown]
  - Tachyarrhythmia [Recovered/Resolved]
  - Hyperglycaemia [Unknown]
  - Hyponatraemia [Unknown]
  - Hypocalcaemia [Unknown]
  - Hypophosphataemia [Unknown]
  - Anaemia [Unknown]
  - Hypothyroidism [Unknown]
  - Immunoglobulins decreased [Unknown]
  - Monoclonal gammopathy [Unknown]
  - Vitamin D deficiency [Unknown]
  - Pneumonia [Unknown]
  - Urinary retention [Unknown]
  - Urinary tract infection [Unknown]
  - Osteoarthritis [Unknown]
  - Osteoarthritis [Unknown]
  - Rotator cuff syndrome [Unknown]
  - Arthralgia [Unknown]
  - Pleural effusion [Unknown]
  - Atrial fibrillation [Unknown]
  - Tremor [Unknown]
  - Staphylococcal infection [Unknown]
  - Decubitus ulcer [Unknown]
  - Decubitus ulcer [Unknown]
  - Back pain [Unknown]
  - Pain [Unknown]
  - Metabolic acidosis [Unknown]
  - Impaired healing [Unknown]
  - Malnutrition [Unknown]
  - Depression [Unknown]
  - Infection [Unknown]
  - Parotitis [Unknown]
  - Gastrointestinal haemorrhage [Unknown]
  - Gastritis [Unknown]
  - Dyspnoea [Unknown]
  - Hepatic steatosis [Unknown]
  - Hypotension [Unknown]
  - Hypovolaemia [Unknown]

NARRATIVE: CASE EVENT DATE: 20240123
